FAERS Safety Report 6360393-5 (Version None)
Quarter: 2009Q3

REPORT INFORMATION
  Report Type: 
  Country: None (occurrence: None)
  Receive Date: 20090917
  Receipt Date: 20090910
  Transmission Date: 20100115
  Serious: Yes (Other)
  Sender: FDA-Public Use
  Company Number: US-AMGEN-QUU364093

PATIENT
  Sex: Female

DRUGS (1)
  1. ENBREL [Suspect]
     Indication: ANKYLOSING SPONDYLITIS
     Route: 058

REACTIONS (8)
  - BRONCHITIS [None]
  - CONTUSION [None]
  - INJECTION SITE HAEMATOMA [None]
  - INJURY [None]
  - INTERVERTEBRAL DISC PROTRUSION [None]
  - LARYNGITIS [None]
  - THYROID NEOPLASM [None]
  - URINARY TRACT INFECTION [None]
